FAERS Safety Report 9675063 (Version 3)
Quarter: 2014Q3

REPORT INFORMATION
  Report Type: Spontaneous
  Country: US (occurrence: None)
  Receive Date: 20131105
  Receipt Date: 20140827
  Transmission Date: 20150326
  Serious: Yes (Life-Threatening)
  Sender: FDA-Public Use
  Company Number: 1713747-2013-99973

PATIENT
  Sex: Male

DRUGS (14)
  1. LIBERTY CYCLER [Concomitant]
     Active Substance: DEVICE
  2. GERNFIBROZIL [Concomitant]
  3. GENTAMICIN [Concomitant]
     Active Substance: GENTAMICIN
  4. LIBERTY CYCLER SET [Concomitant]
  5. COLACE [Concomitant]
     Active Substance: DOCUSATE SODIUM
  6. OMEGA 3 [Concomitant]
     Active Substance: OMEGA-3 FATTY ACIDS
  7. ZYRTEC [Concomitant]
     Active Substance: CETIRIZINE HYDROCHLORIDE
  8. CALICTROL [Concomitant]
  9. RENVELA [Concomitant]
     Active Substance: SEVELAMER CARBONATE
  10. AMLODIPINE [Concomitant]
     Active Substance: AMLODIPINE BESYLATE
  11. DELFLEX [Suspect]
     Active Substance: CALCIUM CHLORIDE\DEXTROSE MONOHYDRATE\MAGNESIUM CHLORIDE\SODIUM CHLORIDE\SODIUM LACTATE
     Indication: PERITONEAL DIALYSIS
  12. ASPIRIN. [Concomitant]
     Active Substance: ASPIRIN
  13. METOPROLOL TARTRATE. [Concomitant]
     Active Substance: METOPROLOL TARTRATE
  14. SENSIPAR [Concomitant]
     Active Substance: CINACALCET HYDROCHLORIDE

REACTIONS (11)
  - Infection [None]
  - Haemodialysis [None]
  - Vomiting [None]
  - Nausea [None]
  - Abdominal pain [None]
  - Bacterial infection [None]
  - Pseudomonas infection [None]
  - Medical device complication [None]
  - Bacterial test positive [None]
  - Peritonitis [None]
  - Peritoneal cloudy effluent [None]

NARRATIVE: CASE EVENT DATE: 20131006
